FAERS Safety Report 13364271 (Version 1)
Quarter: 2017Q1

REPORT INFORMATION
  Report Type: Spontaneous
  Country: US (occurrence: US)
  Receive Date: 20170322
  Receipt Date: 20170322
  Transmission Date: 20170429
  Serious: Yes (Death, Hospitalization)
  Sender: FDA-Public Use
  Company Number: None

PATIENT
  Age: 76 Year
  Sex: Male
  Weight: 77.6 kg

DRUGS (3)
  1. WARFARIN [Suspect]
     Active Substance: WARFARIN
     Indication: ATRIAL FIBRILLATION
     Route: 048
     Dates: start: 20070827, end: 20161107
  2. WARFARIN [Suspect]
     Active Substance: WARFARIN
     Indication: DEEP VEIN THROMBOSIS
     Route: 048
     Dates: start: 20070827, end: 20161107
  3. ASPIRIN. [Suspect]
     Active Substance: ASPIRIN
     Indication: ATRIAL FIBRILLATION
     Route: 048
     Dates: start: 20080528, end: 20161107

REACTIONS (9)
  - Haematoma [None]
  - Septic shock [None]
  - Myocardial ischaemia [None]
  - Renal ischaemia [None]
  - Hepatic ischaemia [None]
  - Respiratory depression [None]
  - Fall [None]
  - Anaemia [None]
  - International normalised ratio increased [None]

NARRATIVE: CASE EVENT DATE: 20161107
